FAERS Safety Report 9964213 (Version 1)
Quarter: 2014Q1

REPORT INFORMATION
  Report Type: Spontaneous
  Country: US (occurrence: US)
  Receive Date: 20140305
  Receipt Date: 20140305
  Transmission Date: 20141002
  Serious: No
  Sender: FDA-Public Use
  Company Number: US-BAYER-2014-032608

PATIENT
  Age: 23 Year
  Sex: Female

DRUGS (1)
  1. BEYAZ [Suspect]
     Indication: MENORRHAGIA
     Route: 048

REACTIONS (3)
  - Off label use [None]
  - Inappropriate schedule of drug administration [None]
  - Hypomenorrhoea [None]
